FAERS Safety Report 9736493 (Version 1)
Quarter: 2013Q4

REPORT INFORMATION
  Report Type: Spontaneous
  Country: BR (occurrence: BR)
  Receive Date: 20131206
  Receipt Date: 20131206
  Transmission Date: 20140711
  Serious: Yes (Hospitalization, Other)
  Sender: FDA-Public Use
  Company Number: BR-SA-2013SA124192

PATIENT
  Age: 57 Year
  Sex: Male
  Weight: 75 kg

DRUGS (11)
  1. LANTUS SOLOSTAR [Suspect]
     Indication: TYPE 2 DIABETES MELLITUS
     Route: 058
     Dates: start: 2003
  2. EPOETIN ALFA [Concomitant]
     Indication: RENAL DISORDER
     Dosage: ONCE IN 15 DAYS
     Route: 042
  3. AMLODIPINE BESILATE/RAMIPRIL [Concomitant]
     Indication: CARDIAC DISORDER
     Route: 048
  4. LIPITOR [Concomitant]
     Indication: BLOOD CHOLESTEROL
     Route: 048
  5. SOMALGIN [Concomitant]
     Indication: ANTICOAGULANT THERAPY
     Route: 048
  6. FUROSEMIDE [Concomitant]
     Indication: DIURETIC THERAPY
     Route: 048
  7. SUSTRATE [Concomitant]
     Indication: CARDIAC DISORDER
     Route: 048
  8. CLOPIDOGREL BISULFATE [Concomitant]
     Indication: CARDIAC DISORDER
     Route: 048
  9. CEBRALAT [Concomitant]
     Indication: ILL-DEFINED DISORDER
     Route: 048
  10. APIDRA [Concomitant]
     Indication: TYPE 2 DIABETES MELLITUS
     Dosage: UNITS: IU AFTER MEAL
  11. SOLOSTAR [Concomitant]
     Indication: DEVICE THERAPY
     Route: 058
     Dates: start: 2003

REACTIONS (11)
  - Localised infection [Recovered/Resolved]
  - Pain [Recovered/Resolved]
  - Hyperkeratosis [Recovered/Resolved]
  - Blood glucose decreased [Recovered/Resolved]
  - Pulmonary oedema [Recovered/Resolved]
  - Fatigue [Recovered/Resolved]
  - Cough [Recovered/Resolved]
  - Infarction [Recovered/Resolved]
  - Fatigue [Recovered/Resolved]
  - Fatigue [Recovered/Resolved]
  - Renal failure [Recovering/Resolving]
